FAERS Safety Report 8827550 (Version 3)
Quarter: 2015Q1

REPORT INFORMATION
  Report Type: Spontaneous
  Country: US (occurrence: US)
  Receive Date: 20121005
  Receipt Date: 20150324
  Transmission Date: 20150721
  Serious: Yes (Hospitalization, Disabling, Other)
  Sender: FDA-Public Use
  Company Number: US-ASTRAZENECA-2012SE26936

PATIENT
  Age: 64 Year
  Sex: Female
  Weight: 88.9 kg

DRUGS (18)
  1. LISINOPRIL. [Suspect]
     Active Substance: LISINOPRIL
     Route: 048
  2. MORPHINE [Suspect]
     Active Substance: MORPHINE
     Route: 065
  3. MECLIZINE [Concomitant]
     Active Substance: MECLIZINE\MECLIZINE HYDROCHLORIDE
     Indication: DIZZINESS
     Route: 048
     Dates: start: 2008
  4. ANTIVERT [Concomitant]
     Active Substance: MECLIZINE HYDROCHLORIDE
     Indication: INNER EAR DISORDER
     Dosage: 25MG PRN
     Dates: start: 2000
  5. NEXIUM [Suspect]
     Active Substance: ESOMEPRAZOLE MAGNESIUM
     Indication: GASTROOESOPHAGEAL REFLUX DISEASE
     Route: 048
     Dates: start: 2012, end: 20131204
  6. NEXIUM [Suspect]
     Active Substance: ESOMEPRAZOLE MAGNESIUM
     Indication: GASTROOESOPHAGEAL REFLUX DISEASE
     Route: 048
     Dates: start: 2012, end: 20131204
  7. ANTIVERT [Concomitant]
     Active Substance: MECLIZINE HYDROCHLORIDE
     Indication: DIZZINESS
     Dosage: 25MG PRN
     Dates: start: 2000
  8. ASPIRIN. [Concomitant]
     Active Substance: ASPIRIN
     Indication: CARDIAC DISORDER
     Dosage: 81 MG PRN
  9. SERIES OF VITAMINS [Concomitant]
  10. NEXIUM [Suspect]
     Active Substance: ESOMEPRAZOLE MAGNESIUM
     Indication: GASTROOESOPHAGEAL REFLUX DISEASE
     Route: 048
     Dates: start: 1998
  11. ATACAND [Suspect]
     Active Substance: CANDESARTAN CILEXETIL
     Indication: BLOOD PRESSURE ABNORMAL
     Route: 048
     Dates: start: 2008, end: 20150206
  12. ATACAND HCT [Suspect]
     Active Substance: CANDESARTAN CILEXETIL\HYDROCHLOROTHIAZIDE
     Indication: BLOOD PRESSURE ABNORMAL
     Dosage: 16-12.5 MG DAILY
     Route: 048
     Dates: start: 1990
  13. ATACAND HCT [Suspect]
     Active Substance: CANDESARTAN CILEXETIL\HYDROCHLOROTHIAZIDE
     Indication: BLOOD PRESSURE ABNORMAL
     Dosage: DAILY
     Route: 048
     Dates: start: 20150303
  14. ATACAND HCT [Suspect]
     Active Substance: CANDESARTAN CILEXETIL\HYDROCHLOROTHIAZIDE
     Indication: BLOOD PRESSURE ABNORMAL
     Dosage: DAILY
     Route: 048
     Dates: start: 20150303
  15. ZANTAC [Concomitant]
     Active Substance: RANITIDINE HYDROCHLORIDE
     Indication: DYSPEPSIA
     Dosage: 150 MG PRN
  16. ATACAND HCT [Suspect]
     Active Substance: CANDESARTAN CILEXETIL\HYDROCHLOROTHIAZIDE
     Indication: BLOOD PRESSURE ABNORMAL
     Dosage: 16-12.5 MG DAILY
     Route: 048
     Dates: start: 1990
  17. HORMONE THERAPY [Concomitant]
     Active Substance: UNSPECIFIED INGREDIENT
  18. NEXIUM [Suspect]
     Active Substance: ESOMEPRAZOLE MAGNESIUM
     Indication: GASTROOESOPHAGEAL REFLUX DISEASE
     Route: 048
     Dates: start: 1998

REACTIONS (19)
  - Lipoma [Recovering/Resolving]
  - Cardiomegaly [Unknown]
  - Arthritis [Unknown]
  - Weight increased [Not Recovered/Not Resolved]
  - Blood pressure abnormal [Unknown]
  - Dizziness [Unknown]
  - Fall [Unknown]
  - Arthralgia [Recovered/Resolved]
  - Drug hypersensitivity [Unknown]
  - Peripheral swelling [Unknown]
  - Ear disorder [Unknown]
  - Product substitution issue [None]
  - Joint dislocation [Not Recovered/Not Resolved]
  - Bronchitis [Unknown]
  - Heart rate increased [Unknown]
  - Cartilage injury [Unknown]
  - Impaired work ability [Unknown]
  - Drug dose omission [Unknown]
  - Abdominal distension [Unknown]

NARRATIVE: CASE EVENT DATE: 1991
